FAERS Safety Report 9094133 (Version 1)
Quarter: 2013Q1

REPORT INFORMATION
  Report Type: Spontaneous
  Country: US (occurrence: US)
  Receive Date: 20130218
  Receipt Date: 20130218
  Transmission Date: 20140127
  Serious: No
  Sender: FDA-Public Use
  Company Number: US-MYLANLABS-2012S1006370

PATIENT
  Sex: Male

DRUGS (6)
  1. GUANFACINE [Suspect]
     Indication: INSOMNIA
     Route: 048
     Dates: start: 20120314
  2. GUANFACINE [Suspect]
     Indication: ATTENTION DEFICIT/HYPERACTIVITY DISORDER
     Route: 048
     Dates: start: 20120314
  3. GUANFACINE [Suspect]
     Indication: INSOMNIA
     Route: 048
     Dates: start: 20120314
  4. GUANFACINE [Suspect]
     Indication: ATTENTION DEFICIT/HYPERACTIVITY DISORDER
     Route: 048
     Dates: start: 20120314
  5. DEXTROAMPHETAMINE [Suspect]
     Indication: INSOMNIA
     Route: 048
     Dates: start: 20120314
  6. DEXTROAMPHETAMINE [Suspect]
     Indication: ATTENTION DEFICIT/HYPERACTIVITY DISORDER
     Route: 048
     Dates: start: 20120314

REACTIONS (1)
  - Coeliac disease [Not Recovered/Not Resolved]
